FAERS Safety Report 8963412 (Version 1)
Quarter: 2012Q4

REPORT INFORMATION
  Report Type: 
  Country: US (occurrence: US)
  Receive Date: 20121214
  Receipt Date: 20121214
  Transmission Date: 20130627
  Serious: No
  Sender: FDA-Public Use
  Company Number: US-BIOGENIDEC-2012BI058637

PATIENT
  Sex: Female
  Weight: 117 kg

DRUGS (7)
  1. TYSABRI [Suspect]
     Indication: MULTIPLE SCLEROSIS
     Route: 042
     Dates: start: 20120618
  2. AVONEX [Concomitant]
     Indication: MULTIPLE SCLEROSIS
     Route: 030
  3. THYROID HORMONE [Concomitant]
     Indication: HYPOTHYROIDISM
  4. TOPAMAX [Concomitant]
  5. RESTORIL [Concomitant]
     Indication: SLEEP DISORDER
  6. EFFEXOR [Concomitant]
  7. AMANTADINE [Concomitant]
     Indication: FATIGUE

REACTIONS (12)
  - Hypothyroidism [Not Recovered/Not Resolved]
  - Snoring [Unknown]
  - Respiratory arrest [Not Recovered/Not Resolved]
  - Poor quality sleep [Unknown]
  - Pain [Unknown]
  - Hypoaesthesia [Not Recovered/Not Resolved]
  - Gait disturbance [Not Recovered/Not Resolved]
  - Vertigo [Unknown]
  - Diabetes mellitus [Unknown]
  - Fatigue [Not Recovered/Not Resolved]
  - Dizziness [Unknown]
  - Malaise [Unknown]
